FAERS Safety Report 9119604 (Version 1)
Quarter: 2013Q1

REPORT INFORMATION
  Report Type: Spontaneous
  Country: JP (occurrence: JP)
  Receive Date: 20130226
  Receipt Date: 20130226
  Transmission Date: 20140127
  Serious: Yes (Life-Threatening, Hospitalization)
  Sender: FDA-Public Use
  Company Number: JP-MYLANLABS-2013S1003560

PATIENT
  Age: 65 Year
  Sex: Female

DRUGS (7)
  1. DEXTROMETHORPHAN [Suspect]
     Indication: BRONCHITIS
     Route: 065
  2. MAPROTILINE [Interacting]
     Indication: DEPRESSION
     Dosage: GRADUALLY INCREASED TO 30MG ONCE DAILY
     Route: 065
  3. MAPROTILINE [Interacting]
     Indication: DEPRESSION
     Route: 065
  4. VERAPAMIL [Concomitant]
     Indication: ATRIAL FIBRILLATION
     Route: 065
  5. BISOPROLOL [Concomitant]
     Indication: ATRIAL FIBRILLATION
     Route: 065
  6. WARFARIN [Concomitant]
     Indication: ATRIAL FIBRILLATION
     Route: 065
  7. AMOXICILLIN [Concomitant]
     Indication: BRONCHITIS
     Route: 065

REACTIONS (4)
  - Cardiogenic shock [Recovered/Resolved]
  - Stress cardiomyopathy [Recovered/Resolved]
  - Serotonin syndrome [Recovering/Resolving]
  - Drug interaction [Recovered/Resolved]
